FAERS Safety Report 6094782-3 (Version None)
Quarter: 2009Q1

REPORT INFORMATION
  Report Type: 
  Country: None (occurrence: None)
  Receive Date: 20090225
  Receipt Date: 20090217
  Transmission Date: 20090719
  Serious: Yes (Death, Life-Threatening, Other)
  Sender: FDA-Public Use
  Company Number: 2008-04870

PATIENT
  Age: 62 Year
  Sex: Male

DRUGS (48)
  1. VELCADE [Suspect]
     Indication: ACUTE MYELOID LEUKAEMIA
     Dosage: 2 MG
     Dates: start: 20081206, end: 20081209
  2. CYCLOPHOSPHAMIDE [Suspect]
     Indication: ACUTE MYELOID LEUKAEMIA
     Dosage: 50 MG/M2
     Dates: start: 20081207, end: 20081208
  3. FLUDARABINE PHOSPHATE [Suspect]
     Indication: ACUTE MYELOID LEUKAEMIA
     Dosage: 35 MG/M2
  4. PROLEUKIN [Suspect]
     Indication: ACUTE MYELOID LEUKAEMIA
     Dosage: 10 MIU, SUBCUTANEOUS
     Route: 058
     Dates: start: 20081211, end: 20081217
  5. THYMOGLOBULIN [Suspect]
     Indication: ACUTE MYELOID LEUKAEMIA
     Dosage: 3 MG/KG
     Dates: start: 20081223, end: 20081224
  6. ACETAMINOPHEN [Concomitant]
  7. DIPHENHYDRAMINE HCL [Concomitant]
  8. PROCHLORPERAZINE MALEATE (PROCHLORPERAZINE MALEATE) [Concomitant]
  9. LORAZEPAM [Concomitant]
  10. PANTOPRAZOLE SODIUM [Concomitant]
  11. URSODIOL (URSODEOXYCHLOIC ACID) [Concomitant]
  12. ACYCLOVIR [Concomitant]
  13. LEVOFLOXACIN [Concomitant]
  14. FLUCONAZOLE [Concomitant]
  15. MEPERIDINE HCL [Concomitant]
  16. FILGRASTIM [Concomitant]
  17. CIMETIDINE [Concomitant]
  18. DEXAMETHASONE [Concomitant]
  19. METHYLPREDNISOLONE ACETATE [Concomitant]
  20. TAMSULOSIN HCL [Concomitant]
  21. FUROSEMIDE [Concomitant]
  22. CEFTAZIDIME [Concomitant]
  23. VANCOMYCIN [Concomitant]
  24. CHOLESTYRAMINE RESIN (COLESTYRAMINE) [Concomitant]
  25. DILTIAZEM [Concomitant]
  26. LOPERAMIDE [Concomitant]
  27. DIGOXIN [Concomitant]
  28. MESNA [Concomitant]
  29. ONDANSETRON HCL [Concomitant]
  30. PHENYLEPHRINE (PHENYLEPHRINE) [Concomitant]
  31. TOBRAMYCIN [Concomitant]
  32. AMIODARONE (AMIODARONE) [Concomitant]
  33. NALOXONE [Concomitant]
  34. PENICILLIN V POTASSIUM (PHENOXYMETHYLPENICILLIN POTASSIUM) [Concomitant]
  35. METOPROLOL TARTRATE [Concomitant]
  36. LOPERAMIDE [Concomitant]
  37. MORPHINE [Concomitant]
  38. METRONIDAZOLE [Concomitant]
  39. FENTANYL-100 [Concomitant]
  40. OLANZAPINE [Concomitant]
  41. DAPTOMYCIN [Concomitant]
  42. HALOPERIDOL LACTATE [Concomitant]
  43. ACTIVASE [Concomitant]
  44. ALBUTEROL [Concomitant]
  45. DEFIBROTIDE (DEFIBROTIDE) [Concomitant]
  46. CASPOFUNGIN (CASPOFUNGIN) [Concomitant]
  47. PROPOFOL [Concomitant]
  48. VASOPRESSIN INJECTION (VASOPRESSIN INJECTION) [Concomitant]

REACTIONS (21)
  - ASCITES [None]
  - ATRIAL FIBRILLATION [None]
  - CARDIAC FAILURE [None]
  - CHOLECYSTITIS [None]
  - CHOLELITHIASIS [None]
  - DIARRHOEA [None]
  - ENTEROCOCCAL SEPSIS [None]
  - FEBRILE NEUTROPENIA [None]
  - GASTROINTESTINAL HAEMORRHAGE [None]
  - HAEMODIALYSIS [None]
  - HYPOTENSION [None]
  - MULTI-ORGAN FAILURE [None]
  - NEPHROPATHY [None]
  - PLEURAL EFFUSION [None]
  - PNEUMONIA BACTERIAL [None]
  - PROCTALGIA [None]
  - RENAL FAILURE [None]
  - RENAL INJURY [None]
  - RENAL TUBULAR NECROSIS [None]
  - RESPIRATORY DISTRESS [None]
  - VENOOCCLUSIVE LIVER DISEASE [None]
